FAERS Safety Report 5780614-7 (Version None)
Quarter: 2008Q2

REPORT INFORMATION
  Report Type: 
  Country: None (occurrence: None)
  Receive Date: 20080620
  Receipt Date: 20080613
  Transmission Date: 20081010
  Serious: Yes (Other)
  Sender: FDA-Public Use
  Company Number: US-ELI_LILLY_AND_COMPANY-US200806003400

PATIENT
  Sex: Female

DRUGS (2)
  1. BYETTA [Suspect]
     Indication: TYPE 2 DIABETES MELLITUS
     Route: 058
     Dates: start: 20050101, end: 20080501
  2. SYMLIN [Concomitant]
     Dates: start: 20060101

REACTIONS (3)
  - CEREBROVASCULAR ACCIDENT [None]
  - MALAISE [None]
  - THERAPEUTIC RESPONSE DECREASED [None]
